FAERS Safety Report 6057969-1 (Version None)
Quarter: 2009Q1

REPORT INFORMATION
  Report Type: 
  Country: None (occurrence: None)
  Receive Date: 20090129
  Receipt Date: 20090122
  Transmission Date: 20090719
  Serious: No
  Sender: FDA-Public Use
  Company Number: US-B.I. PHARMACEUTICALS,INC./RIDGEFIELD-2008-BP-18667BP

PATIENT
  Sex: Male

DRUGS (8)
  1. FLOMAX [Suspect]
     Indication: BENIGN PROSTATIC HYPERPLASIA
     Dosage: .4MG
     Route: 048
     Dates: start: 20050101, end: 20081001
  2. FLOMAX [Suspect]
     Indication: PROSTATIC DISORDER
  3. FLOMAX [Suspect]
     Indication: DYSURIA
  4. LOVASTATIN [Concomitant]
     Indication: BLOOD CHOLESTEROL INCREASED
     Dosage: 20MG
  5. METFORMIN HCL [Concomitant]
     Indication: TYPE 2 DIABETES MELLITUS
     Dosage: 1000MG
     Route: 048
  6. ZETIA [Concomitant]
     Dosage: 10MG
  7. ASPIRIN [Concomitant]
     Dosage: 81MG
  8. AVODART [Concomitant]
     Dosage: .5MG

REACTIONS (2)
  - CATARACT [None]
  - VISUAL ACUITY REDUCED [None]
